FAERS Safety Report 6449101-7 (Version None)
Quarter: 2009Q4

REPORT INFORMATION
  Report Type: 
  Country: None (occurrence: None)
  Receive Date: 20091120
  Receipt Date: 20091111
  Transmission Date: 20100525
  Serious: No
  Sender: FDA-Public Use
  Company Number: US-JNJFOC-20091104375

PATIENT
  Sex: Male
  Weight: 73.03 kg

DRUGS (2)
  1. DURAGESIC-100 [Suspect]
     Indication: BACK PAIN
     Dosage: NDC#: 5045803605
     Route: 062
     Dates: start: 20090701, end: 20091001
  2. ALLEGRA [Concomitant]
     Indication: SINUSITIS
     Route: 048

REACTIONS (3)
  - ARTHRITIS [None]
  - BACK DISORDER [None]
  - INAPPROPRIATE SCHEDULE OF DRUG ADMINISTRATION [None]
